FAERS Safety Report 10018230 (Version 2)
Quarter: 2014Q1

REPORT INFORMATION
  Report Type: Spontaneous
  Country: US (occurrence: US)
  Receive Date: 20140318
  Receipt Date: 20140318
  Transmission Date: 20141002
  Serious: No
  Sender: FDA-Public Use
  Company Number: US-BRISTOL-MYERS SQUIBB COMPANY-19431592

PATIENT
  Age: 69 Year
  Sex: Male
  Weight: 143 kg

DRUGS (3)
  1. ERBITUX [Suspect]
     Indication: RECTAL CANCER
     Dosage: 5/200 MG VIALS TOTAL 1000MG INFUSION
  2. IRINOTECAN [Concomitant]
  3. LEUCOVORIN [Concomitant]

REACTIONS (1)
  - Diarrhoea [Unknown]
